FAERS Safety Report 20087720 (Version 1)
Quarter: 2021Q4

REPORT INFORMATION
  Report Type: Spontaneous
  Country: CN (occurrence: CN)
  Receive Date: 20211118
  Receipt Date: 20211118
  Transmission Date: 20220303
  Serious: Yes (Other)
  Sender: FDA-Public Use
  Company Number: CN-ELI_LILLY_AND_COMPANY-CN202111005187

PATIENT
  Age: 77 Year
  Sex: Female
  Weight: 51 kg

DRUGS (2)
  1. HUMULIN 70/30 [Suspect]
     Active Substance: INSULIN HUMAN
     Indication: Diabetes mellitus
     Dosage: 32 U, EACH MORNING
     Route: 058
     Dates: start: 1999, end: 20211109
  2. HUMULIN 70/30 [Suspect]
     Active Substance: INSULIN HUMAN
     Dosage: 24 U, DAILY, (NIGHT)
     Route: 058
     Dates: start: 1999, end: 20211109

REACTIONS (6)
  - Venous thrombosis limb [Unknown]
  - Asthenia [Unknown]
  - Gait disturbance [Unknown]
  - Presbyopia [Unknown]
  - Vision blurred [Unknown]
  - Product dose omission issue [Not Recovered/Not Resolved]

NARRATIVE: CASE EVENT DATE: 20211109
